FAERS Safety Report 21580363 (Version 1)
Quarter: 2022Q4

REPORT INFORMATION
  Report Type: Spontaneous
  Country: US (occurrence: None)
  Receive Date: 20221110
  Receipt Date: 20221110
  Transmission Date: 20230112
  Serious: No
  Sender: FDA-Public Use
  Company Number: 2022A345939

PATIENT
  Sex: Female

DRUGS (1)
  1. SYMLIN [Suspect]
     Active Substance: PRAMLINTIDE ACETATE
     Dosage: 120 MCG OR THE 60 MCG
     Route: 058

REACTIONS (4)
  - Diabetes mellitus [Unknown]
  - Blood glucose fluctuation [Unknown]
  - Product dose omission in error [Unknown]
  - Product availability issue [Unknown]
